FAERS Safety Report 6609801-2 (Version None)
Quarter: 2010Q1

REPORT INFORMATION
  Report Type: 
  Country: None (occurrence: None)
  Receive Date: 20100302
  Receipt Date: 20100222
  Transmission Date: 20100710
  Serious: Yes (Hospitalization, Other)
  Sender: FDA-Public Use
  Company Number: US-ELI_LILLY_AND_COMPANY-US201002006553

PATIENT
  Sex: Female

DRUGS (4)
  1. HUMULIN N [Suspect]
     Dosage: UNK, UNK
     Dates: start: 20000101, end: 20060101
  2. HUMULIN R [Suspect]
     Dosage: UNK, UNK
     Dates: start: 20000101, end: 20060101
  3. NOVOLOG [Concomitant]
  4. INSULIN [Concomitant]

REACTIONS (14)
  - ALOPECIA [None]
  - BURSITIS [None]
  - DYSPNOEA [None]
  - FALL [None]
  - HYPERTENSION [None]
  - MUSCULOSKELETAL PAIN [None]
  - OSTEOMYELITIS [None]
  - RETINAL TEAR [None]
  - SEASONAL ALLERGY [None]
  - STREPTOCOCCAL INFECTION [None]
  - THERMAL BURN [None]
  - VISUAL ACUITY REDUCED [None]
  - VISUAL IMPAIRMENT [None]
  - WEIGHT INCREASED [None]
